FAERS Safety Report 13858484 (Version 1)
Quarter: 2017Q3

REPORT INFORMATION
  Report Type: Spontaneous
  Country: US (occurrence: US)
  Receive Date: 20170811
  Receipt Date: 20170811
  Transmission Date: 20171127
  Serious: Yes (Life-Threatening, Other)
  Sender: FDA-Public Use
  Company Number: US-WEST-WARD PHARMACEUTICALS CORP.-US-H14001-17-02943

PATIENT
  Age: 46 Year
  Sex: Male

DRUGS (1)
  1. HEPARIN [Suspect]
     Active Substance: HEPARIN SODIUM
     Indication: SPLENIC VEIN THROMBOSIS
     Route: 041
     Dates: start: 2015, end: 2015

REACTIONS (4)
  - Tachypnoea [Recovering/Resolving]
  - Tachycardia [Recovering/Resolving]
  - Anaemia [Recovered/Resolved]
  - Haematoma [Recovering/Resolving]

NARRATIVE: CASE EVENT DATE: 2015
